FAERS Safety Report 8916853 (Version 1)
Quarter: 2012Q4

REPORT INFORMATION
  Report Type: 
  Country: US (occurrence: US)
  Receive Date: 20121120
  Receipt Date: 20121120
  Transmission Date: 20130627
  Serious: No
  Sender: FDA-Public Use
  Company Number: US-PFIZER INC-2012289660

PATIENT
  Age: 58 Year
  Sex: Female

DRUGS (3)
  1. ENBREL [Suspect]
     Indication: SJOGREN^S SYNDROME
     Dosage: 50 mg, qwk
     Dates: start: 20121025
  2. MEDROL [Suspect]
     Dosage: UNK
     Dates: end: 201211
  3. PREDNISONE [Concomitant]
     Dosage: UNK

REACTIONS (5)
  - Headache [Recovered/Resolved]
  - Blood pressure increased [Recovered/Resolved]
  - Injection site pain [Not Recovered/Not Resolved]
  - Off label use [Unknown]
  - Drug ineffective for unapproved indication [Unknown]
